FAERS Safety Report 5882035-5 (Version None)
Quarter: 2008Q3

REPORT INFORMATION
  Report Type: 
  Country: None (occurrence: None)
  Receive Date: 20080912
  Receipt Date: 20080717
  Transmission Date: 20090109
  Serious: No
  Sender: FDA-Public Use
  Company Number: US-ABBOTT-08P-163-0464918-00

PATIENT
  Sex: Female

DRUGS (1)
  1. HUMIRA [Suspect]
     Indication: PUSTULAR PSORIASIS
     Route: 048
     Dates: start: 20080401

REACTIONS (1)
  - ACCIDENTAL EXPOSURE [None]
